FAERS Safety Report 9339237 (Version 2)
Quarter: 2013Q2

REPORT INFORMATION
  Report Type: Spontaneous
  Country: US (occurrence: None)
  Receive Date: 20130605
  Receipt Date: 20130624
  Transmission Date: 20140414
  Serious: Yes (Other)
  Sender: FDA-Public Use
  Company Number: AUR-APL-2013-04515

PATIENT
  Age: 17 Year
  Sex: Male

DRUGS (2)
  1. FLUOXETINE (FLUOXETINE) [Suspect]
     Indication: GENERALISED ANXIETY DISORDER
  2. SERTRALINE (SERTRALINE) (SERTRALINE) [Suspect]
     Indication: GENERALISED ANXIETY DISORDER

REACTIONS (7)
  - Anxiety [None]
  - Tension [None]
  - Restlessness [None]
  - Merycism [None]
  - Initial insomnia [None]
  - Middle insomnia [None]
  - Headache [None]
